FAERS Safety Report 5212898-8 (Version None)
Quarter: 2007Q1

REPORT INFORMATION
  Report Type: 
  Country: None (occurrence: None)
  Receive Date: 20070116
  Receipt Date: 20070108
  Transmission Date: 20070707
  Serious: Yes (Other)
  Sender: FDA-Public Use
  Company Number: GXKR2007US00560

PATIENT
  Age: 53 Year
  Sex: Male

DRUGS (3)
  1. AMOXICILLIN-CLAVULANIC ACID (NGX) (AMOXICILLIN, CLAVULANATE) UNKNOWN [Suspect]
     Indication: SINUSITIS
     Dosage: 874 MG, BID; ORAL
     Route: 048
  2. BUDESONIDE [Concomitant]
  3. CLARITIN [Concomitant]

REACTIONS (2)
  - HEPATITIS [None]
  - HEPATOTOXICITY [None]
